FAERS Safety Report 10245717 (Version 1)
Quarter: 2014Q2

REPORT INFORMATION
  Report Type: Spontaneous
  Country: US (occurrence: US)
  Receive Date: 20140619
  Receipt Date: 20140619
  Transmission Date: 20141212
  Serious: No
  Sender: FDA-Public Use
  Company Number: US-ASTRAZENECA-2014SE39980

PATIENT
  Age: 59 Year
  Sex: Female
  Weight: 74.8 kg

DRUGS (9)
  1. TOPROL XL [Suspect]
     Indication: MITRAL VALVE PROLAPSE
     Route: 048
  2. TOPROL XL [Suspect]
     Indication: HYPERTENSION
     Route: 048
  3. TOPROL XL [Suspect]
     Indication: MITRAL VALVE PROLAPSE
     Dosage: METOPROLOL SUCCINATE, GENERIC
     Route: 048
     Dates: start: 2014
  4. TOPROL XL [Suspect]
     Indication: HYPERTENSION
     Dosage: METOPROLOL SUCCINATE, GENERIC
     Route: 048
     Dates: start: 2014
  5. SPIRONOLACTONE [Concomitant]
     Indication: HYPERTENSION
     Route: 048
  6. LEVOTHYROXINE [Concomitant]
     Indication: HYPOTHYROIDISM
     Route: 048
  7. CLARITIN [Concomitant]
     Indication: HYPERSENSITIVITY
     Dosage: AS REQUIRED
     Route: 048
  8. ADVIL [Concomitant]
     Indication: MYALGIA
     Route: 048
  9. ADVIL [Concomitant]
     Indication: ARTHRALGIA
     Route: 048

REACTIONS (9)
  - Swelling face [Unknown]
  - Abdominal distension [Unknown]
  - Influenza like illness [Unknown]
  - Pyrexia [Unknown]
  - Temperature intolerance [Unknown]
  - Myalgia [Unknown]
  - Peripheral swelling [Unknown]
  - Peripheral swelling [Unknown]
  - Arthralgia [Unknown]
